FAERS Safety Report 5933854-8 (Version None)
Quarter: 2008Q4

REPORT INFORMATION
  Report Type: 
  Country: None (occurrence: None)
  Receive Date: 20081024
  Receipt Date: 20081013
  Transmission Date: 20090506
  Serious: Yes (Death, Hospitalization, Other)
  Sender: FDA-Public Use
  Company Number: 53399

PATIENT
  Age: 71 Year
  Sex: Female

DRUGS (1)
  1. FLOXURIDINE [Suspect]
     Indication: OESOPHAGEAL ADENOCARCINOMA

REACTIONS (5)
  - DIABETES MELLITUS INADEQUATE CONTROL [None]
  - GENERAL PHYSICAL HEALTH DETERIORATION [None]
  - INFECTION [None]
  - SEPSIS [None]
  - UNRESPONSIVE TO STIMULI [None]
